FAERS Safety Report 9070358 (Version 1)
Quarter: 2013Q1

REPORT INFORMATION
  Report Type: Report from Study
  Country: US (occurrence: US)
  Receive Date: 20130128
  Receipt Date: 20130128
  Transmission Date: 20140127
  Serious: No
  Sender: FDA-Public Use
  Company Number: US-ABBOTT-12P-163-0914426-00

PATIENT
  Age: 56 Year
  Sex: Female

DRUGS (8)
  1. HUMIRA 40 MG/0.8 ML PEN [Suspect]
     Indication: RHEUMATOID ARTHRITIS
     Dates: start: 201101, end: 20120302
  2. HUMIRA 40 MG/0.8 ML PEN [Suspect]
  3. ALEVE [Concomitant]
     Indication: FIBROMYALGIA
  4. SAVELLA [Concomitant]
     Indication: FIBROMYALGIA
     Dosage: AT BED TIME
  5. PLAQUENIL [Concomitant]
     Indication: PRODUCT USED FOR UNKNOWN INDICATION
  6. HYDROCHLOROTHIAZIDE [Concomitant]
     Indication: BLOOD PRESSURE
  7. LISINOPRIL [Concomitant]
     Indication: BLOOD PRESSURE
  8. VITAMIN D [Concomitant]
     Indication: VITAMIN D DEFICIENCY

REACTIONS (5)
  - Fungal infection [Unknown]
  - Rash macular [Unknown]
  - Rheumatoid arthritis [Unknown]
  - Arthralgia [Unknown]
  - Arthralgia [Unknown]
